FAERS Safety Report 23315820 (Version 2)
Quarter: 2024Q1

REPORT INFORMATION
  Report Type: Spontaneous
  Country: JP (occurrence: JP)
  Receive Date: 20231219
  Receipt Date: 20240104
  Transmission Date: 20240410
  Serious: Yes (Hospitalization, Other)
  Sender: FDA-Public Use
  Company Number: JP-ONO-2023JP030790

PATIENT
  Age: 7 Decade
  Sex: Male

DRUGS (1)
  1. OPDIVO [Suspect]
     Active Substance: NIVOLUMAB
     Indication: Rectal cancer
     Dosage: 360 MG, Q3W
     Route: 041

REACTIONS (9)
  - Pelvic abscess [Unknown]
  - Focal peritonitis [Recovering/Resolving]
  - Sepsis [Unknown]
  - Disseminated intravascular coagulation [Unknown]
  - Postrenal failure [Unknown]
  - Decreased activity [Unknown]
  - General physical health deterioration [Unknown]
  - Urinary tract infection [Unknown]
  - Off label use [Unknown]
